FAERS Safety Report 8533307-7 (Version None)
Quarter: 2012Q2

REPORT INFORMATION
  Report Type: 
  Country: None (occurrence: None)
  Receive Date: 20120412
  Receipt Date: 20120126
  Transmission Date: 20120825
  Serious: Yes (Other)
  Sender: FDA-Public Use
  Company Number: 2012S1000003

PATIENT
  Age: 44 Year
  Sex: Male
  Weight: 161.0269 kg

DRUGS (17)
  1. SENNA /00142201/ [Concomitant]
  2. METHYLPREDNISOLONE SODIUM SUCCINATE [Concomitant]
  3. DOCUSATE SODIUM [Concomitant]
  4. OMEPRAZOLE [Concomitant]
  5. TYLENOL (CAPLET) [Concomitant]
  6. PREDNISONE [Concomitant]
  7. METOPROLOL SUCCINATE [Concomitant]
  8. LISINOPRIL [Concomitant]
  9. MORPHINE SULFATE [Concomitant]
  10. HYDROCODONE HYDROCHLORIDE W/PARACETAMOL [Concomitant]
  11. KRYSTEXXA [Suspect]
     Indication: GOUTY TOPHUS
     Dosage: 8 MG;X1;IV 8 MG;X1;IV
     Route: 042
     Dates: start: 20111101, end: 20111101
  12. KRYSTEXXA [Suspect]
     Indication: GOUTY TOPHUS
     Dosage: 8 MG;X1;IV 8 MG;X1;IV
     Route: 042
     Dates: start: 20120123, end: 20120123
  13. SULFAMETHOXAZOLE AND TRIMETHOPRIM [Concomitant]
  14. CLARITIN /00917501/ [Concomitant]
  15. BENADRYL /00945501/ [Concomitant]
  16. WARFARIN SODIUM [Concomitant]
  17. FERROUS SULFATE TAB [Concomitant]

REACTIONS (1)
  - INFUSION RELATED REACTION [None]
